FAERS Safety Report 8844667 (Version 1)
Quarter: 2012Q4

REPORT INFORMATION
  Report Type: 
  Country: BR (occurrence: BR)
  Receive Date: 20121017
  Receipt Date: 20121017
  Transmission Date: 20130627
  Serious: Yes (Death, Other)
  Sender: FDA-Public Use
  Company Number: PHHY2012BR091881

PATIENT
  Age: 49 Year
  Sex: Male

DRUGS (4)
  1. BASILIXIMAB [Suspect]
     Indication: RENAL AND PANCREAS TRANSPLANT
  2. TACROLIMUS [Concomitant]
  3. MYCOPHENOLATE MOFETIL [Concomitant]
  4. PREDNISONE [Concomitant]

REACTIONS (12)
  - Sepsis [Fatal]
  - Cardio-respiratory arrest [Unknown]
  - Acinetobacter infection [Unknown]
  - Scrotal pain [Unknown]
  - Scrotal oedema [Unknown]
  - Oedema peripheral [Unknown]
  - Pain in extremity [Unknown]
  - Septic shock [Unknown]
  - Skin lesion [Unknown]
  - Dermatitis bullous [Unknown]
  - Necrotising fasciitis [Unknown]
  - Skin necrosis [Unknown]
